FAERS Safety Report 10089767 (Version 1)
Quarter: 2014Q2

REPORT INFORMATION
  Report Type: Spontaneous
  Country: US (occurrence: US)
  Receive Date: 20140421
  Receipt Date: 20140421
  Transmission Date: 20141212
  Serious: No
  Sender: FDA-Public Use
  Company Number: US-PFIZER INC-2014110493

PATIENT
  Age: 75 Year
  Sex: Female
  Weight: 58.5 kg

DRUGS (3)
  1. LYRICA [Suspect]
     Indication: SPINAL CORD DISORDER
     Dosage: 50 MG, DAILY
     Dates: start: 201403
  2. LYRICA [Suspect]
     Indication: NEUROPATHY PERIPHERAL
     Dosage: 75 MG, DAILY
     Dates: start: 2014
  3. XANAX [Concomitant]
     Indication: ANXIETY
     Dosage: 20 MG, 2X/DAY

REACTIONS (1)
  - Drug ineffective [Unknown]
